FAERS Safety Report 18916029 (Version 1)
Quarter: 2021Q1

REPORT INFORMATION
  Report Type: Spontaneous
  Country: US (occurrence: US)
  Receive Date: 20210218
  Receipt Date: 20210218
  Transmission Date: 20210420
  Serious: No
  Sender: FDA-Public Use
  Company Number: US-JNJFOC-20210212593

PATIENT
  Age: 46 Year
  Sex: Female
  Weight: 83.99 kg

DRUGS (1)
  1. WOMENS ROGAINE UNSCENTED [Suspect]
     Active Substance: MINOXIDIL
     Indication: ALOPECIA
     Dosage: DOSE AND FREQUENCY: SAME ON DIRECTION AND ONCE A DAY.?THE PRODUCT WAS LAST USED IN  /DEC/2020
     Route: 061
     Dates: start: 202001

REACTIONS (2)
  - Migraine [Recovered/Resolved]
  - Application site hypersensitivity [Recovered/Resolved]

NARRATIVE: CASE EVENT DATE: 202007
